FAERS Safety Report 14546375 (Version 3)
Quarter: 2018Q1

REPORT INFORMATION
  Report Type: Report from Study
  Country: None (occurrence: US)
  Receive Date: 20180219
  Receipt Date: 20180316
  Transmission Date: 20180509
  Serious: Yes (Other)
  Sender: FDA-Public Use
  Company Number: US-ABBVIE-18K-163-2256227-00

PATIENT
  Age: 24 Year
  Sex: Female
  Weight: 77.18 kg

DRUGS (7)
  1. HUMIRA [Suspect]
     Active Substance: ADALIMUMAB
     Route: 058
     Dates: start: 201802, end: 20180223
  2. SERTRALINE [Concomitant]
     Active Substance: SERTRALINE HYDROCHLORIDE
     Indication: ANXIETY
  3. FOLIC ACID. [Concomitant]
     Active Substance: FOLIC ACID
     Indication: VITAMIN SUPPLEMENTATION
  4. HUMIRA [Suspect]
     Active Substance: ADALIMUMAB
     Indication: RHEUMATOID ARTHRITIS
     Route: 058
     Dates: start: 201705, end: 201801
  5. IRON [Concomitant]
     Active Substance: IRON
     Indication: MINERAL SUPPLEMENTATION
  6. LEFLUNOMIDE. [Concomitant]
     Active Substance: LEFLUNOMIDE
     Indication: RHEUMATOID ARTHRITIS
  7. METHOTREXATE. [Concomitant]
     Active Substance: METHOTREXATE
     Indication: RHEUMATOID ARTHRITIS

REACTIONS (17)
  - Tri-iodothyronine free decreased [Recovering/Resolving]
  - Uterine infection [Recovering/Resolving]
  - Fatigue [Recovered/Resolved]
  - Reverse tri-iodothyronine decreased [Recovering/Resolving]
  - Pruritus [Recovered/Resolved]
  - Endometriosis [Not Recovered/Not Resolved]
  - Rheumatoid arthritis [Unknown]
  - Autoimmune thyroiditis [Recovering/Resolving]
  - Tri-iodothyronine decreased [Recovering/Resolving]
  - Eczema [Unknown]
  - Injection site urticaria [Not Recovered/Not Resolved]
  - Uterine pain [Recovering/Resolving]
  - Injection site pain [Not Recovered/Not Resolved]
  - Injection site pruritus [Not Recovered/Not Resolved]
  - Post procedural infection [Unknown]
  - Cervicitis [Unknown]
  - Dehydroepiandrosterone increased [Recovering/Resolving]

NARRATIVE: CASE EVENT DATE: 2017
